FAERS Safety Report 21336212 (Version 1)
Quarter: 2022Q3

REPORT INFORMATION
  Report Type: Spontaneous
  Country: JP (occurrence: JP)
  Receive Date: 20220915
  Receipt Date: 20220915
  Transmission Date: 20221027
  Serious: Yes (Death)
  Sender: FDA-Public Use
  Company Number: JP-JNJFOC-20220124542

PATIENT
  Age: 92 Year
  Sex: Female

DRUGS (2)
  1. ONEDURO [Suspect]
     Active Substance: FENTANYL
     Indication: Pain
     Dosage: FENTANYL (ONE DAY MATRIX PATCH) 12.5MCG/HR
     Route: 062
  2. ONEDURO [Suspect]
     Active Substance: FENTANYL
     Dosage: FENTANYL (ONE DAY MATRIX PATCH) 12.5MCG/HR
     Route: 062
     Dates: start: 20211211, end: 20211213

REACTIONS (1)
  - Marasmus [Fatal]
